FAERS Safety Report 16920750 (Version 5)
Quarter: 2019Q4

REPORT INFORMATION
  Report Type: Report from Study
  Country: US (occurrence: US)
  Receive Date: 20191015
  Receipt Date: 20191115
  Transmission Date: 20200122
  Serious: Yes (Life-Threatening, Other)
  Sender: FDA-Public Use
  Company Number: US-GLAXOSMITHKLINE-US2019TSO173021

PATIENT
  Age: 63 Year
  Sex: Female

DRUGS (2)
  1. NIRAPARIB [Suspect]
     Active Substance: NIRAPARIB
     Dosage: 100 MG, PM BEFORE BED WITHOUT FOOD
     Route: 065
     Dates: start: 20191009, end: 20191016
  2. NIRAPARIB [Suspect]
     Active Substance: NIRAPARIB
     Indication: OVARIAN CANCER
     Dosage: 300 MG, PM BEFORE BED WITHOUT FOOD
     Route: 048
     Dates: start: 20190919

REACTIONS (18)
  - Weight decreased [Not Recovered/Not Resolved]
  - Vomiting [Recovered/Resolved]
  - Malignant neoplasm progression [Unknown]
  - Lymphadenopathy [Unknown]
  - Constipation [Recovered/Resolved]
  - Fatigue [Recovering/Resolving]
  - Heart rate increased [Unknown]
  - Malaise [Recovered/Resolved]
  - Asthenia [Recovering/Resolving]
  - Blood pressure increased [Recovered/Resolved]
  - Insomnia [Unknown]
  - Fluid intake reduced [Recovered/Resolved]
  - Hernia [Unknown]
  - Loss of personal independence in daily activities [Recovered/Resolved]
  - Platelet count decreased [Recovered/Resolved]
  - Abdominal pain upper [Recovering/Resolving]
  - Decreased appetite [Recovering/Resolving]
  - Nausea [Recovering/Resolving]

NARRATIVE: CASE EVENT DATE: 20190919
